FAERS Safety Report 16701481 (Version 1)
Quarter: 2019Q3

REPORT INFORMATION
  Report Type: Spontaneous
  Country: FR (occurrence: FR)
  Receive Date: 20190814
  Receipt Date: 20190814
  Transmission Date: 20191004
  Serious: Yes (Hospitalization)
  Sender: FDA-Public Use
  Company Number: FR-MYLANLABS-2019M1075416

PATIENT
  Age: 59 Year
  Sex: Female
  Weight: 76.5 kg

DRUGS (6)
  1. METHOTREXATE. [Suspect]
     Active Substance: METHOTREXATE
     Indication: LYMPHOMA
     Dosage: 5310 MILLIGRAM, QD
     Route: 041
     Dates: start: 20190115, end: 20190115
  2. ZOPICLONE [Concomitant]
     Active Substance: ZOPICLONE
     Indication: PRODUCT USED FOR UNKNOWN INDICATION
     Dosage: UNK
  3. INNOHEP [Concomitant]
     Active Substance: TINZAPARIN SODIUM
     Indication: PRODUCT USED FOR UNKNOWN INDICATION
     Dosage: UNK
  4. GEMCITABINE. [Suspect]
     Active Substance: GEMCITABINE
     Indication: LYMPHOMA
     Dosage: 1770 MILLIGRAM, QD
     Route: 041
     Dates: start: 20190115, end: 20190115
  5. LOXEN                              /00639802/ [Concomitant]
     Active Substance: NICARDIPINE HYDROCHLORIDE
     Indication: PRODUCT USED FOR UNKNOWN INDICATION
     Dosage: UNK
     Route: 048
  6. OXALIPLATIN. [Suspect]
     Active Substance: OXALIPLATIN
     Indication: LYMPHOMA
     Dosage: 230.1 MILLIGRAM, QD
     Route: 041
     Dates: start: 20190115, end: 20190115

REACTIONS (2)
  - Hepatocellular injury [Recovered/Resolved]
  - Hyperlipasaemia [Not Recovered/Not Resolved]

NARRATIVE: CASE EVENT DATE: 20190117
